FAERS Safety Report 9914220 (Version 1)
Quarter: 2014Q1

REPORT INFORMATION
  Report Type: Spontaneous
  Country: US (occurrence: None)
  Receive Date: 20140218
  Receipt Date: 20140218
  Transmission Date: 20141002
  Serious: Yes (Other)
  Sender: FDA-Public Use
  Company Number: AUR-APL-2014-01644

PATIENT
  Age: 77 Year
  Sex: Male
  Weight: 75.3 kg

DRUGS (8)
  1. LISINOPRIL+HYDROCHLOROTHIAZIDE [Suspect]
     Indication: HYPERTENSION
     Dosage: 1 DOOSAGE FORMS, 1 D), ORAL
     Route: 048
     Dates: start: 2005, end: 20131222
  2. AXITINIB [Suspect]
     Indication: PROSTATE CANCER
     Dosage: 10 MG (5 MG, 2 IN 1 D), ORAL
     Route: 048
     Dates: start: 20131220, end: 20140102
  3. LASIX (FUROSEMIDE) [Concomitant]
  4. LUPRON (LEUPRORELIN ACETATE) [Concomitant]
  5. LOPERAMIDE (LOPERAMIDE) [Concomitant]
  6. POTASSIUM CHLORIDE (POTASSIUM CHLORIDE) [Concomitant]
  7. OMPERAZOLE (OMEPRAZOLE) [Concomitant]
  8. RANITDINE (RANITDINE) [Concomitant]

REACTIONS (1)
  - Electrocardiogram QT prolonged [None]
